FAERS Safety Report 9673967 (Version 3)
Quarter: 2013Q4

REPORT INFORMATION
  Report Type: Spontaneous
  Country: AU (occurrence: AU)
  Receive Date: 20131106
  Receipt Date: 20131226
  Transmission Date: 20140711
  Serious: Yes (Disabling, Other)
  Sender: FDA-Public Use
  Company Number: AU-009507513-1311AUS000581

PATIENT
  Age: 24 Year
  Sex: Female

DRUGS (2)
  1. IMPLANON NXT [Suspect]
     Indication: CONTRACEPTION
     Dosage: 1 ROD, 3 YEARLY
     Route: 059
     Dates: start: 20120731, end: 20131031
  2. IMPLANON NXT [Suspect]
     Dosage: 1 DF, UNK
     Route: 059
     Dates: end: 20110806

REACTIONS (7)
  - Abortion spontaneous [Unknown]
  - Unintended pregnancy [Recovered/Resolved]
  - Vaginal haemorrhage [Unknown]
  - Drug ineffective [Unknown]
  - Menstrual disorder [Unknown]
  - Product quality issue [Unknown]
  - Mood altered [Unknown]
